FAERS Safety Report 9189645 (Version 1)
Quarter: 2013Q1

REPORT INFORMATION
  Report Type: Spontaneous
  Country: US (occurrence: None)
  Receive Date: 20130322
  Receipt Date: 20130322
  Transmission Date: 20140127
  Serious: No
  Sender: FDA-Public Use
  Company Number: None

PATIENT
  Sex: Male

DRUGS (1)
  1. EXJADE 500MG NOVARTIS [Suspect]
     Indication: MYELODYSPLASTIC SYNDROME
     Route: 048

REACTIONS (5)
  - Hepatic pain [None]
  - Renal pain [None]
  - Local swelling [None]
  - Muscle spasms [None]
  - Incorrect dose administered [None]
